FAERS Safety Report 5906112-5 (Version None)
Quarter: 2008Q4

REPORT INFORMATION
  Report Type: 
  Country: None (occurrence: None)
  Receive Date: 20081002
  Receipt Date: 20080924
  Transmission Date: 20090506
  Serious: Yes (Other)
  Sender: FDA-Public Use
  Company Number: PHHY2008AT20271

PATIENT
  Sex: Female

DRUGS (5)
  1. ACLASTA [Suspect]
     Dosage: 5 MG, ONCE/SINGLE
     Dates: start: 20080617
  2. RAMIPRIL COMP [Concomitant]
     Dosage: 1X1 DAILY
  3. ITERIUM [Concomitant]
     Dosage: 1X1 DAILY
  4. THYREX [Concomitant]
     Dosage: 1X1 DAILY
  5. TRENTAL [Concomitant]
     Dosage: 2X1 DAILY

REACTIONS (4)
  - DIARRHOEA [None]
  - DYSPEPSIA [None]
  - FLATULENCE [None]
  - WEIGHT DECREASED [None]
